FAERS Safety Report 16846144 (Version 1)
Quarter: 2019Q3

REPORT INFORMATION
  Report Type: Spontaneous
  Country: US (occurrence: US)
  Receive Date: 20190924
  Receipt Date: 20190924
  Transmission Date: 20191005
  Serious: Yes (Hospitalization)
  Sender: FDA-Public Use
  Company Number: US-TEVA-2019-US-1111642

PATIENT

DRUGS (6)
  1. PANTOPRAZOLE SODIUM. [Suspect]
     Active Substance: PANTOPRAZOLE SODIUM
     Dosage: 40 MILLIGRAM DAILY;
  2. POTASSIUM CHLORIDE. [Suspect]
     Active Substance: POTASSIUM CHLORIDE
  3. TORASEMIDE [Suspect]
     Active Substance: TORSEMIDE
  4. LYRICA [Suspect]
     Active Substance: PREGABALIN
     Indication: NEUROPATHY PERIPHERAL
     Dosage: 200 MILLIGRAM DAILY;
     Dates: start: 2000
  5. HYDRALAZINE [Suspect]
     Active Substance: HYDRALAZINE HYDROCHLORIDE
     Dosage: 150 MILLIGRAM DAILY;
  6. MEMANTINE. [Suspect]
     Active Substance: MEMANTINE

REACTIONS (2)
  - Pain in extremity [Not Recovered/Not Resolved]
  - Fatigue [Unknown]
